FAERS Safety Report 15375799 (Version 1)
Quarter: 2018Q3

REPORT INFORMATION
  Report Type: Spontaneous
  Country: GB (occurrence: DK)
  Receive Date: 20180912
  Receipt Date: 20180912
  Transmission Date: 20181010
  Serious: Yes (Other)
  Sender: FDA-Public Use
  Company Number: DK-FRESENIUS KABI-FK201809518

PATIENT
  Age: 60 Year
  Sex: Male

DRUGS (2)
  1. CARBOPLATIN INJECTION 10MG/ML [Suspect]
     Active Substance: CARBOPLATIN
     Indication: LUNG NEOPLASM MALIGNANT
     Route: 042
     Dates: start: 20170823, end: 20171110
  2. NAVELBINE [Suspect]
     Active Substance: VINORELBINE TARTRATE
     Indication: LUNG NEOPLASM MALIGNANT
     Dosage: STYRKE: 80 MG.
     Route: 048
     Dates: start: 20170830, end: 20171110

REACTIONS (4)
  - Tuberculosis [Recovered/Resolved]
  - Aspergillus test [Recovered/Resolved]
  - Fatigue [Not Recovered/Not Resolved]
  - Bronchoscopy [Recovered/Resolved]

NARRATIVE: CASE EVENT DATE: 201711
